FAERS Safety Report 5799010-1 (Version None)
Quarter: 2008Q3

REPORT INFORMATION
  Report Type: 
  Country: None (occurrence: None)
  Receive Date: 20080702
  Receipt Date: 20080402
  Transmission Date: 20090109
  Serious: No
  Sender: FDA-Public Use
  Company Number: US-BRISTOL-MYERS SQUIBB COMPANY-14134316

PATIENT
  Age: 45 Year
  Sex: Male

DRUGS (5)
  1. SPRYCEL [Suspect]
     Indication: LEUKAEMIA
     Dosage: THERAPY START-35 DAYS AGO
     Dates: start: 20080227
  2. COMPAZINE [Concomitant]
  3. ADVIL [Concomitant]
  4. ATIVAN [Concomitant]
  5. HALCION [Concomitant]

REACTIONS (2)
  - ERYTHEMA [None]
  - HEADACHE [None]
